FAERS Safety Report 15630523 (Version 1)
Quarter: 2018Q4

REPORT INFORMATION
  Report Type: Spontaneous
  Country: US (occurrence: US)
  Receive Date: 20181119
  Receipt Date: 20181119
  Transmission Date: 20190205
  Serious: No
  Sender: FDA-Public Use
  Company Number: US-009507513-1811USA003437

PATIENT
  Age: 18 Year
  Sex: Male

DRUGS (2)
  1. INTRON A [Suspect]
     Active Substance: INTERFERON ALFA-2B
     Dosage: 0.45ML (4.5 MU) OF THE STRENGTH 10MU/1ML (STRENGTH ALSO REPORTED AS 18MU SOL)
  2. INTRON A [Suspect]
     Active Substance: INTERFERON ALFA-2B
     Dosage: 0.45ML (2.7 MU) FROM STRENGTH 18MU/3ML SDV
     Dates: start: 20180315

REACTIONS (1)
  - Underdose [Unknown]

NARRATIVE: CASE EVENT DATE: 20180315
